FAERS Safety Report 7941592-5 (Version None)
Quarter: 2011Q4

REPORT INFORMATION
  Report Type: 
  Country: None (occurrence: None)
  Receive Date: 20111128
  Receipt Date: 20111117
  Transmission Date: 20120403
  Serious: Yes (Hospitalization, Disabling, Other)
  Sender: FDA-Public Use
  Company Number: FR-UCBSA-043191

PATIENT
  Age: 70 Year
  Sex: Male
  Weight: 71 kg

DRUGS (9)
  1. TEGRETOL [Concomitant]
     Indication: BIPOLAR DISORDER
     Route: 048
     Dates: start: 20100111
  2. TRIMEPRAZINE TARTRATE [Concomitant]
     Dosage: 0.5 UNIT
     Route: 048
  3. ASPEGIC 325 [Concomitant]
  4. SOTALOL HCL [Concomitant]
     Indication: CORONARY ARTERY DISEASE
     Route: 048
     Dates: start: 20090309, end: 20111030
  5. EZETIMIBE [Concomitant]
     Route: 048
  6. LANSOPRAZOLE [Concomitant]
     Indication: GASTRIC ULCER HAEMORRHAGE
     Dates: start: 20050501
  7. CLOPIDOGREL [Concomitant]
     Route: 048
  8. KEPPRA [Suspect]
     Indication: ELECTROENCEPHALOGRAM ABNORMAL
     Route: 048
     Dates: start: 20110626
  9. TERCIAN [Concomitant]
     Indication: BIPOLAR DISORDER
     Dosage: 25 MG IN THE EVENING
     Route: 048
     Dates: start: 20081001

REACTIONS (2)
  - ATRIAL FLUTTER [None]
  - ATRIAL FIBRILLATION [None]
